FAERS Safety Report 6645086-9 (Version None)
Quarter: 2010Q1

REPORT INFORMATION
  Report Type: 
  Country: None (occurrence: None)
  Receive Date: 20100319
  Receipt Date: 20100319
  Transmission Date: 20100710
  Serious: Yes (Other)
  Sender: FDA-Public Use
  Company Number: None

PATIENT
  Sex: Female
  Weight: 63.05 kg

DRUGS (2)
  1. RESTASIS [Suspect]
     Indication: KERATOCONJUNCTIVITIS SICCA
     Dosage: ONE DROP IN EACH EYE TWICE A DAY OCCLUSIVE DRESSING
     Route: 046
     Dates: start: 20091212, end: 20100308
  2. RESTASIS [Suspect]
     Indication: KERATOMILEUSIS
     Dosage: ONE DROP IN EACH EYE TWICE A DAY OCCLUSIVE DRESSING
     Route: 046
     Dates: start: 20091212, end: 20100308

REACTIONS (3)
  - APPLICATION SITE PAIN [None]
  - DIPLOPIA [None]
  - VISION BLURRED [None]
